FAERS Safety Report 5230830-8 (Version None)
Quarter: 2007Q1

REPORT INFORMATION
  Report Type: 
  Country: None (occurrence: None)
  Receive Date: 20070202
  Receipt Date: 20070129
  Transmission Date: 20070707
  Serious: Yes (Death, Hospitalization)
  Sender: FDA-Public Use
  Company Number: THQ2007A00080

PATIENT
  Age: 74 Year
  Sex: Male

DRUGS (2)
  1. LEUPROLIDE ACETATE [Suspect]
     Indication: PROSTATE CANCER
     Dosage: 11.25 MG (11.25 MG, 1 IN 3 M)
     Dates: start: 20060608
  2. BICALUTAMIDE [Concomitant]

REACTIONS (2)
  - BLADDER CANCER [None]
  - SEPSIS [None]
